FAERS Safety Report 5285993-5 (Version None)
Quarter: 2007Q1

REPORT INFORMATION
  Report Type: 
  Country: None (occurrence: None)
  Receive Date: 20070104
  Receipt Date: 20061020
  Transmission Date: 20070707
  Serious: No
  Sender: FDA-Public Use
  Company Number: BDI-008698

PATIENT
  Age: 49 Year
  Sex: Female

DRUGS (4)
  1. MULTIHANCE [Suspect]
     Indication: DEAFNESS NEUROSENSORY
     Dosage: 25 ML ONCE IV
     Route: 042
     Dates: start: 20060920, end: 20060920
  2. MULTIHANCE [Suspect]
     Indication: MENINGIOMA
     Dosage: 25 ML ONCE IV
     Route: 042
     Dates: start: 20060920, end: 20060920
  3. MULTIHANCE [Suspect]
     Indication: NUCLEAR MAGNETIC RESONANCE IMAGING
     Dosage: 25 ML ONCE IV
     Route: 042
     Dates: start: 20060920, end: 20060920
  4. MULTIHANCE [Suspect]
     Indication: NUCLEAR MAGNETIC RESONANCE IMAGING BRAIN
     Dosage: 25 ML ONCE IV
     Route: 042
     Dates: start: 20060920, end: 20060920

REACTIONS (1)
  - HYPERSENSITIVITY [None]
